FAERS Safety Report 5580860-1 (Version None)
Quarter: 2007Q4

REPORT INFORMATION
  Report Type: 
  Country: None (occurrence: None)
  Receive Date: 20071130
  Receipt Date: 20070712
  Transmission Date: 20080405
  Serious: No
  Sender: FDA-Public Use
  Company Number: US200707003309

PATIENT
  Age: 60 Year
  Sex: Male
  Weight: 144.2 kg

DRUGS (4)
  1. BYETTA [Suspect]
     Indication: GLUCOSE TOLERANCE IMPAIRED
     Dosage: 5 UG, 2/D, SUBCUTANEOUS
     Route: 058
     Dates: start: 20070706, end: 20070712
  2. METFORMIN HCL [Concomitant]
  3. TOPRAL (SULTOPRIDE) [Concomitant]
  4. LASIX [Concomitant]

REACTIONS (7)
  - BACK PAIN [None]
  - DIARRHOEA [None]
  - DYSGEUSIA [None]
  - ERUCTATION [None]
  - FEELING JITTERY [None]
  - FLATULENCE [None]
  - HEADACHE [None]
